FAERS Safety Report 9496904 (Version 2)
Quarter: 2014Q1

REPORT INFORMATION
  Report Type: Spontaneous
  Country: US (occurrence: US)
  Receive Date: 20130904
  Receipt Date: 20140318
  Transmission Date: 20141002
  Serious: Yes (Hospitalization, Other)
  Sender: FDA-Public Use
  Company Number: US-BAYER-2013-105512

PATIENT
  Age: 29 Year
  Sex: Female

DRUGS (3)
  1. MIRENA [Suspect]
     Dosage: 20 MCG/24HR, CONT
     Route: 015
     Dates: start: 20060615, end: 20100617
  2. MIRENA [Suspect]
     Dosage: 20 MCG/24HR, CONT
     Dates: start: 20111208, end: 20121030
  3. MIRENA [Suspect]
     Dosage: 20 MCG/24HR, CONT
     Dates: start: 20121030

REACTIONS (12)
  - Uterine perforation [None]
  - Complication of device removal [None]
  - Genital haemorrhage [None]
  - Abdominal pain lower [None]
  - Pelvic pain [None]
  - Device difficult to use [None]
  - Device dislocation [None]
  - Medical device pain [None]
  - Infection [None]
  - Injury [None]
  - Anxiety [None]
  - Device issue [None]
